FAERS Safety Report 9057333 (Version 1)
Quarter: 2013Q1

REPORT INFORMATION
  Report Type: Spontaneous
  Country: US (occurrence: US)
  Receive Date: 20130204
  Receipt Date: 20130204
  Transmission Date: 20140127
  Serious: Yes (Death, Other)
  Sender: FDA-Public Use
  Company Number: US-PFIZER INC-2013033755

PATIENT
  Age: 87 Year
  Sex: Female

DRUGS (1)
  1. SUTENT [Suspect]
     Indication: RENAL CANCER
     Dosage: 37.5 MG (12.5 MG AND 25 MG), 1X/DAY
     Dates: start: 20120131

REACTIONS (2)
  - Osteomyelitis [Fatal]
  - Wound infection [Fatal]
